FAERS Safety Report 9097086 (Version 1)
Quarter: 2013Q1

REPORT INFORMATION
  Report Type: Spontaneous
  Country: US (occurrence: None)
  Receive Date: 20130125
  Receipt Date: 20130125
  Transmission Date: 20140127
  Serious: No
  Sender: FDA-Public Use
  Company Number: MPS1-1000914

PATIENT
  Age: 42 Year
  Sex: Female
  Weight: 45.3 kg

DRUGS (1)
  1. ALDURAZYME (LARONIDASE) CONCENTRATE FOR SOLUTION FOR INFUSION [Suspect]
     Indication: MUCOPOLYSACCHARIDOSIS I
     Route: 042
     Dates: start: 20120411

REACTIONS (1)
  - Cervical cord compression [None]
